FAERS Safety Report 9649196 (Version 1)
Quarter: 2013Q4

REPORT INFORMATION
  Report Type: Spontaneous
  Country: US (occurrence: None)
  Receive Date: 20131018
  Receipt Date: 20131018
  Transmission Date: 20140711
  Serious: No
  Sender: FDA-Public Use
  Company Number: AEGR000146

PATIENT
  Age: 29 Year
  Sex: Male

DRUGS (8)
  1. JUXTAPID [Suspect]
     Indication: TYPE IIA HYPERLIPIDAEMIA
     Route: 048
     Dates: start: 201305, end: 201305
  2. CRESTOR (ROSUVASTATIN CALCIUM) [Concomitant]
  3. ZETIA (EZETIMIBE) [Concomitant]
  4. ASA (ASA) [Concomitant]
  5. LOSARTAN (LOSARTAN) [Suspect]
  6. VIT E [Suspect]
  7. FISH OIL [Suspect]
  8. VIT D (ERGOCALCIFEROL) [Concomitant]

REACTIONS (1)
  - Hepatic enzyme increased [None]
